FAERS Safety Report 9407917 (Version 1)
Quarter: 2013Q3

REPORT INFORMATION
  Report Type: Spontaneous
  Country: US (occurrence: US)
  Receive Date: 20130718
  Receipt Date: 20130718
  Transmission Date: 20140515
  Serious: No
  Sender: FDA-Public Use
  Company Number: US-009507513-1307USA008446

PATIENT
  Sex: Female

DRUGS (3)
  1. MIRALAX [Suspect]
     Indication: CONSTIPATION
     Dosage: 17 G, TID
     Route: 048
     Dates: start: 20130626
  2. MIRALAX [Suspect]
     Indication: MEDICAL OBSERVATION
     Dosage: 17 G, BID
     Route: 048
     Dates: start: 20130627
  3. MIRALAX [Suspect]
     Dosage: 17 G, QD
     Route: 048
     Dates: start: 20130628

REACTIONS (3)
  - Prescribed overdose [Unknown]
  - Product label confusion [Unknown]
  - Incorrect drug administration duration [Unknown]
